FAERS Safety Report 8121060-0 (Version None)
Quarter: 2012Q1

REPORT INFORMATION
  Report Type: 
  Country: None (occurrence: None)
  Receive Date: 20120208
  Receipt Date: 20120203
  Transmission Date: 20120608
  Serious: Yes (Hospitalization)
  Sender: FDA-Public Use
  Company Number: MY-AMGEN-MYSCT2011017022

PATIENT
  Age: 42 Year
  Sex: Female
  Weight: 34.6 kg

DRUGS (9)
  1. OLIVE OIL [Concomitant]
     Indication: DRY SKIN
     Dosage: UNK
     Route: 061
     Dates: start: 20100730
  2. PANITUMUMAB [Suspect]
     Dates: start: 20100702, end: 20110225
  3. OXYCONTIN [Concomitant]
     Indication: PAIN
     Dosage: UNK
     Route: 048
     Dates: start: 20100622
  4. PANITUMUMAB [Suspect]
     Indication: COLORECTAL CANCER METASTATIC
     Dosage: 115 MG, UNK
     Dates: start: 20100702
  5. CELEBREX [Concomitant]
     Indication: PAIN
     Dosage: UNK
     Route: 048
     Dates: start: 20100205
  6. CHLORPHENIRAMINE MALEATE [Concomitant]
     Indication: PRURITUS
     Dosage: UNK UNK, UNK
     Route: 048
     Dates: start: 20100924
  7. DOXYCYCLINE [Concomitant]
     Indication: NAIL TOXICITY
     Dosage: UNK UNK, UNK
     Route: 048
     Dates: start: 20100827, end: 20110225
  8. AQUEOUS [Concomitant]
     Indication: DRY SKIN
     Dosage: UNK
     Route: 061
     Dates: start: 20100716
  9. LORAZEPAM [Concomitant]
     Indication: INSOMNIA
     Dosage: UNK
     Route: 048
     Dates: start: 20101004

REACTIONS (1)
  - HAEMOGLOBIN DECREASED [None]
